FAERS Safety Report 22165777 (Version 2)
Quarter: 2023Q2

REPORT INFORMATION
  Report Type: Report from Study
  Country: BG (occurrence: None)
  Receive Date: 20230403
  Receipt Date: 20230426
  Transmission Date: 20230722
  Serious: Yes (Life-Threatening)
  Sender: FDA-Public Use
  Company Number: BG-ROCHE-3321479

PATIENT
  Age: 62 Year
  Sex: Male

DRUGS (9)
  1. FARICIMAB [Suspect]
     Active Substance: FARICIMAB
     Indication: Diabetic retinal oedema
     Dosage: MOST RECENT DOSE: 02/NOV/2022 1:00PM, 6MG
     Route: 050
     Dates: start: 20210326
  2. AFLIBERCEPT [Suspect]
     Active Substance: AFLIBERCEPT
     Indication: Diabetic retinal oedema
     Route: 050
     Dates: start: 20210813
  3. NEBIVOLOL [Concomitant]
     Active Substance: NEBIVOLOL
     Indication: Hypertension
     Dates: start: 2019
  4. MONOPRIL [Concomitant]
     Active Substance: FOSINOPRIL SODIUM
     Indication: Hypertension
     Route: 048
     Dates: start: 201904
  5. RAVEL [Concomitant]
     Indication: Hypertension
     Route: 048
     Dates: start: 201904
  6. TRIFAS [Concomitant]
     Indication: Hypertension
     Route: 048
     Dates: start: 201904
  7. NORVASC [Concomitant]
     Active Substance: AMLODIPINE BESYLATE
     Indication: Hypertension
     Route: 048
     Dates: start: 201904
  8. FENOFIBRATE\SIMVASTATIN [Concomitant]
     Active Substance: FENOFIBRATE\SIMVASTATIN
     Indication: Dyslipidaemia
     Route: 048
     Dates: start: 2016
  9. FEBUXOSTAT [Concomitant]
     Active Substance: FEBUXOSTAT
     Indication: Gout
     Route: 048
     Dates: start: 201904

REACTIONS (1)
  - Pneumonia [Recovering/Resolving]

NARRATIVE: CASE EVENT DATE: 20230329
